FAERS Safety Report 7808690-8 (Version None)
Quarter: 2011Q4

REPORT INFORMATION
  Report Type: 
  Country: None (occurrence: None)
  Receive Date: 20111012
  Receipt Date: 20111004
  Transmission Date: 20120403
  Serious: Yes (Hospitalization, Other)
  Sender: FDA-Public Use
  Company Number: US-ASTELLAS-2011US006429

PATIENT
  Age: 49 Year
  Sex: Female
  Weight: 48 kg

DRUGS (2)
  1. GDC-0449 [Suspect]
     Indication: ADENOCARCINOMA PANCREAS
     Dosage: 150 MG, UID/QD
     Route: 048
     Dates: start: 20110825, end: 20110921
  2. ERLOTINIB HYDROCHLORIDE [Suspect]
     Indication: ADENOCARCINOMA PANCREAS
     Dosage: 150 MG, UID/QD
     Route: 048
     Dates: start: 20110825, end: 20110921

REACTIONS (7)
  - BILE DUCT OBSTRUCTION [None]
  - BLOOD ALKALINE PHOSPHATASE INCREASED [None]
  - AFFERENT LOOP SYNDROME [None]
  - VOMITING [None]
  - BLOOD BILIRUBIN INCREASED [None]
  - DEVICE OCCLUSION [None]
  - NAUSEA [None]
